FAERS Safety Report 7019556-8 (Version None)
Quarter: 2010Q3

REPORT INFORMATION
  Report Type: 
  Country: None (occurrence: None)
  Receive Date: 20100928
  Receipt Date: 20100928
  Transmission Date: 20110219
  Serious: Yes (Life-Threatening, Hospitalization, Other)
  Sender: FDA-Public Use
  Company Number: None

PATIENT
  Age: 54 Year
  Sex: Female
  Weight: 73.0291 kg

DRUGS (1)
  1. IPRATROPIUM BROMIDE [Suspect]

REACTIONS (1)
  - HYPERGLYCAEMIA [None]
